FAERS Safety Report 7560766-9 (Version None)
Quarter: 2011Q2

REPORT INFORMATION
  Report Type: 
  Country: None (occurrence: None)
  Receive Date: 20110621
  Receipt Date: 20110120
  Transmission Date: 20111010
  Serious: No
  Sender: FDA-Public Use
  Company Number: US-ASTRAZENECA-2007UW07118

PATIENT
  Age: 72 Year
  Sex: Female
  Weight: 65.3 kg

DRUGS (3)
  1. CRESTOR [Suspect]
     Indication: HYPERCHOLESTEROLAEMIA
     Route: 048
  2. CO-Q-10 [Concomitant]
  3. ATACAND [Suspect]
     Indication: HYPERTENSION
     Route: 048
     Dates: start: 20070101

REACTIONS (7)
  - HYPERHIDROSIS [None]
  - LIMB DISCOMFORT [None]
  - EXOSTOSIS [None]
  - TREMOR [None]
  - COUGH [None]
  - PAIN IN EXTREMITY [None]
  - DIZZINESS [None]
